FAERS Safety Report 6882243-0 (Version None)
Quarter: 2010Q3

REPORT INFORMATION
  Report Type: 
  Country: None (occurrence: None)
  Receive Date: 20100729
  Receipt Date: 20100722
  Transmission Date: 20110219
  Serious: Yes (Hospitalization)
  Sender: FDA-Public Use
  Company Number: BR-ELI_LILLY_AND_COMPANY-BR201003003640

PATIENT
  Sex: Female
  Weight: 74.8 kg

DRUGS (5)
  1. BYETTA [Suspect]
     Indication: TYPE 2 DIABETES MELLITUS
     Dosage: 10 UG, 2/D
     Route: 058
     Dates: start: 20091001, end: 20100301
  2. GLIMEPIRIDE W/METFORMIN [Concomitant]
  3. GLIMEPIRIDE W/METFORMIN [Concomitant]
  4. DIOVAN [Concomitant]
     Indication: HYPERTENSION
  5. RASILEZ [Concomitant]
     Indication: HYPERTENSION

REACTIONS (5)
  - BLOOD GLUCOSE INCREASED [None]
  - DIABETES MELLITUS INADEQUATE CONTROL [None]
  - DRUG INEFFECTIVE [None]
  - HYPERGLYCAEMIA [None]
  - INJECTION SITE HAEMORRHAGE [None]
